FAERS Safety Report 10052582 (Version 1)
Quarter: 2014Q2

REPORT INFORMATION
  Report Type: Spontaneous
  Country: US (occurrence: US)
  Receive Date: 20140402
  Receipt Date: 20140402
  Transmission Date: 20141212
  Serious: No
  Sender: FDA-Public Use
  Company Number: US-BAYER-2014-041554

PATIENT
  Age: 48 Year
  Sex: Female
  Weight: 117.91 kg

DRUGS (1)
  1. ALEVE CAPLET [Suspect]
     Indication: ARTHRITIS
     Dosage: UNK
     Route: 048
     Dates: start: 20131001

REACTIONS (3)
  - Extra dose administered [None]
  - Incorrect drug administration duration [None]
  - Extra dose administered [None]
